FAERS Safety Report 18418886 (Version 1)
Quarter: 2020Q4

REPORT INFORMATION
  Report Type: Spontaneous
  Country: US (occurrence: US)
  Receive Date: 20201022
  Receipt Date: 20201022
  Transmission Date: 20210114
  Serious: Yes (Hospitalization)
  Sender: FDA-Public Use
  Company Number: None

PATIENT
  Age: 68 Year
  Sex: Female
  Weight: 48.99 kg

DRUGS (21)
  1. VITAMIN B6 [Concomitant]
     Active Substance: PYRIDOXINE HYDROCHLORIDE
  2. METOPROLOL SUCCINATE ER [Concomitant]
     Active Substance: METOPROLOL SUCCINATE
  3. ZARXIO 300 MCG/0.5 ML SYRN [Concomitant]
  4. OXAPLATIN [Concomitant]
     Active Substance: OXALIPLATIN
  5. MYCOPHENOLATE MOFETIL. [Concomitant]
     Active Substance: MYCOPHENOLATE MOFETIL
  6. CALCIUM CARBONATE ANTACID [Concomitant]
  7. DIPHENHYDRAMINE 50 MG/ML VIAL [Concomitant]
  8. FLUOROURACIL. [Concomitant]
     Active Substance: FLUOROURACIL
  9. AMLODIPINE BESYLATE. [Concomitant]
     Active Substance: AMLODIPINE BESYLATE
  10. PACLITAXEL 150 MG/25 ML VIAL [Concomitant]
  11. XARELTO [Concomitant]
     Active Substance: RIVAROXABAN
  12. VITAMIN D3 [Concomitant]
     Active Substance: CHOLECALCIFEROL
  13. AVASTIN [Concomitant]
     Active Substance: BEVACIZUMAB
  14. ONDANSETRON [Suspect]
     Active Substance: ONDANSETRON
     Indication: PROPHYLAXIS OF NAUSEA AND VOMITING
     Dosage: ?          OTHER FREQUENCY:DAY 1 + 8 Q 21D;?
     Route: 042
     Dates: start: 20190729, end: 20201022
  15. RETACRIT [Concomitant]
     Active Substance: EPOETIN ALFA-EPBX
  16. DEXAMETHASONE. [Concomitant]
     Active Substance: DEXAMETHASONE
  17. LEUCOVORIN. [Suspect]
     Active Substance: LEUCOVORIN
     Indication: CHOLANGIOCARCINOMA
     Dosage: ?          OTHER FREQUENCY:ONCE EVERY 14 DAYS;?
     Route: 042
     Dates: start: 20190729, end: 20201022
  18. SIMVASTATIN. [Concomitant]
     Active Substance: SIMVASTATIN
  19. FAMOTIDINE 20 MG/2 ML VIAL [Concomitant]
  20. GEMCITABINE 1 GM VIAL [Concomitant]
  21. EMEND [Concomitant]
     Active Substance: APREPITANT

REACTIONS (3)
  - General physical health deterioration [None]
  - Dysphagia [None]
  - Aphasia [None]

NARRATIVE: CASE EVENT DATE: 20201022
